FAERS Safety Report 10262644 (Version 1)
Quarter: 2014Q2

REPORT INFORMATION
  Report Type: Report from Study
  Country: US (occurrence: US)
  Receive Date: 20140626
  Receipt Date: 20140626
  Transmission Date: 20141212
  Serious: Yes (Other)
  Sender: FDA-Public Use
  Company Number: US-MYLANLABS-2013S1010040

PATIENT
  Age: 36 Year
  Sex: Female

DRUGS (8)
  1. CLOZAPINE TABLETS [Suspect]
     Route: 048
     Dates: start: 201304, end: 20130503
  2. CLOZAPINE TABLETS [Suspect]
     Route: 048
     Dates: start: 201304, end: 20130503
  3. KEPPRA [Concomitant]
  4. LITHIUM [Concomitant]
  5. MAGNESIUM OXIDE [Concomitant]
  6. POTASSIUM [Concomitant]
  7. ZOLOFT [Concomitant]
  8. DEPAKENE [Concomitant]

REACTIONS (1)
  - Granulocytopenia [Not Recovered/Not Resolved]
